FAERS Safety Report 7176658-3 (Version None)
Quarter: 2010Q4

REPORT INFORMATION
  Report Type: 
  Country: None (occurrence: None)
  Receive Date: 20101215
  Receipt Date: 20101215
  Transmission Date: 20110411
  Serious: Yes (Life-Threatening, Hospitalization)
  Sender: FDA-Public Use
  Company Number: None

PATIENT
  Sex: Male
  Weight: 158.759 kg

DRUGS (2)
  1. AMIODARONE HCL [Suspect]
     Indication: ARRHYTHMIA
     Dosage: TWICE DAILY
     Dates: start: 20081010, end: 20090418
  2. AMIODARONE HCL [Suspect]
     Indication: BLOOD PRESSURE ABNORMAL
     Dosage: TWICE DAILY
     Dates: start: 20081010, end: 20090418

REACTIONS (3)
  - DRUG TOXICITY [None]
  - MOUNTAIN SICKNESS ACUTE [None]
  - PULMONARY OEDEMA [None]
